FAERS Safety Report 8574879-6 (Version None)
Quarter: 2012Q2

REPORT INFORMATION
  Report Type: 
  Country: None (occurrence: None)
  Receive Date: 20120423
  Receipt Date: 20091111
  Transmission Date: 20120825
  Serious: Yes (Other)
  Sender: FDA-Public Use
  Company Number: PHEH2009US15743

PATIENT
  Age: 23 Year
  Sex: Male
  Weight: 65.8 kg

DRUGS (1)
  1. EXJADE [Suspect]
     Indication: SICKLE CELL ANAEMIA WITH CRISIS
     Dosage: 1000 MG, 20 MG/KG, ORAL
     Route: 048

REACTIONS (3)
  - SERUM FERRITIN INCREASED [None]
  - LIVER FUNCTION TEST ABNORMAL [None]
  - CHILLS [None]
